FAERS Safety Report 4772726-1 (Version None)
Quarter: 2005Q3

REPORT INFORMATION
  Report Type: 
  Country: None (occurrence: None)
  Receive Date: 20050914
  Receipt Date: 20041109
  Transmission Date: 20060218
  Serious: Yes (Other)
  Sender: FDA-Public Use
  Company Number: 163-20785-04110215

PATIENT
  Age: 76 Year
  Sex: Male

DRUGS (2)
  1. THALOMID [Suspect]
     Indication: MULTIPLE MYELOMA
     Dosage: 100 MG, BID, ORAL
     Route: 048
     Dates: start: 20040809, end: 20040907
  2. RYTHMNOL (PROPAFENONE) [Concomitant]

REACTIONS (4)
  - BRADYCARDIA [None]
  - DIZZINESS [None]
  - MALAISE [None]
  - VISUAL ACUITY REDUCED [None]
